FAERS Safety Report 10036695 (Version 2)
Quarter: 2014Q2

REPORT INFORMATION
  Report Type: Spontaneous
  Country: US (occurrence: US)
  Receive Date: 20140326
  Receipt Date: 20140507
  Transmission Date: 20141212
  Serious: Yes (Hospitalization)
  Sender: FDA-Public Use
  Company Number: US-BIOGENIDEC-2014BI025043

PATIENT
  Age: 57 Year
  Sex: Female

DRUGS (14)
  1. TECFIDERA [Suspect]
     Indication: MULTIPLE SCLEROSIS
     Dates: start: 20130828
  2. TECFIDERA [Suspect]
     Indication: MULTIPLE SCLEROSIS
     Route: 048
  3. CALTRATE + D [Concomitant]
  4. SINGULAIR CHW [Concomitant]
  5. FUROSEMIDE [Concomitant]
  6. K-DUR [Concomitant]
  7. LANTUS [Concomitant]
  8. BUMETANIDE [Concomitant]
  9. NOVOLOG [Concomitant]
  10. CYANOCOBALAM [Concomitant]
  11. ATORVASTATIN [Concomitant]
  12. VITAMIN C [Concomitant]
  13. BENICAR [Concomitant]
  14. VITAMIN D [Concomitant]

REACTIONS (4)
  - Multiple sclerosis relapse [Unknown]
  - Rheumatoid arthritis [Unknown]
  - Erythema [Unknown]
  - Chest pain [Unknown]
